FAERS Safety Report 23077327 (Version 3)
Quarter: 2023Q4

REPORT INFORMATION
  Report Type: Report from Study
  Country: US (occurrence: US)
  Receive Date: 20231018
  Receipt Date: 20231117
  Transmission Date: 20240109
  Serious: Yes (Other)
  Sender: FDA-Public Use
  Company Number: US-ABBVIE-5451595

PATIENT
  Sex: Male

DRUGS (3)
  1. SKYRIZI [Suspect]
     Active Substance: RISANKIZUMAB-RZAA
     Indication: Ankylosing spondylitis
     Route: 058
     Dates: start: 20220425
  2. SKYRIZI [Suspect]
     Active Substance: RISANKIZUMAB-RZAA
     Indication: Arthritis
  3. RINVOQ [Suspect]
     Active Substance: UPADACITINIB
     Indication: Product used for unknown indication
     Route: 048
     Dates: start: 20220425

REACTIONS (7)
  - Therapeutic nerve ablation [Not Recovered/Not Resolved]
  - Injury [Not Recovered/Not Resolved]
  - Muscle rupture [Unknown]
  - Haematoma [Unknown]
  - Back pain [Unknown]
  - Knee arthroplasty [Unknown]
  - Mobility decreased [Unknown]
